FAERS Safety Report 15617555 (Version 1)
Quarter: 2018Q4

REPORT INFORMATION
  Report Type: Spontaneous
  Country: US (occurrence: US)
  Receive Date: 20181113
  Receipt Date: 20181113
  Transmission Date: 20190205
  Serious: Yes (Hospitalization)
  Sender: FDA-Public Use
  Company Number: None

PATIENT
  Sex: Male

DRUGS (17)
  1. CALCIUM CARB [Concomitant]
     Active Substance: CALCIUM CARBONATE
  2. PRAVASTATIN. [Concomitant]
     Active Substance: PRAVASTATIN
  3. DILTIAZEM. [Concomitant]
     Active Substance: DILTIAZEM
  4. MAGNESIUM [Concomitant]
     Active Substance: MAGNESIUM
  5. TACROLIMUS. [Suspect]
     Active Substance: TACROLIMUS
     Indication: HEART TRANSPLANT
     Route: 048
     Dates: start: 20170127
  6. COLACE [Concomitant]
     Active Substance: DOCUSATE SODIUM
  7. IRON FORMULA [Concomitant]
  8. PREDNISONE. [Concomitant]
     Active Substance: PREDNISONE
  9. VITAMIN D3 [Concomitant]
     Active Substance: CHOLECALCIFEROL
  10. MYCOPHENOLATE [Suspect]
     Active Substance: MYCOPHENOLIC ACID
     Indication: HEART TRANSPLANT
     Route: 048
     Dates: start: 20170127
  11. BUMETANIDE. [Concomitant]
     Active Substance: BUMETANIDE
  12. VALGANCICLOV [Concomitant]
  13. ASPIRIN. [Concomitant]
     Active Substance: ASPIRIN
  14. ZOCOR [Concomitant]
     Active Substance: SIMVASTATIN
  15. BACTRIM [Concomitant]
     Active Substance: SULFAMETHOXAZOLE\TRIMETHOPRIM
  16. SIMVASTATIN. [Concomitant]
     Active Substance: SIMVASTATIN
  17. LISINOPRIL. [Concomitant]
     Active Substance: LISINOPRIL

REACTIONS (1)
  - Therapy cessation [None]
